FAERS Safety Report 5870948-X (Version None)
Quarter: 2008Q3

REPORT INFORMATION
  Report Type: 
  Country: None (occurrence: None)
  Receive Date: 20080904
  Receipt Date: 20080828
  Transmission Date: 20090109
  Serious: Yes (Other)
  Sender: FDA-Public Use
  Company Number: US-ASTRAZENECA-2008UW17786

PATIENT
  Age: 58 Year
  Sex: Female
  Weight: 83.9 kg

DRUGS (4)
  1. CRESTOR [Suspect]
     Indication: DYSLIPIDAEMIA
     Dosage: 10 MG
     Route: 048
  2. CRESTOR [Suspect]
     Dosage: 40 MG
     Route: 048
     Dates: end: 20080806
  3. CRESTOR [Suspect]
     Dosage: 5 MG
     Route: 048
     Dates: start: 20080801
  4. LISINOPRIL [Concomitant]
     Route: 048

REACTIONS (8)
  - ABASIA [None]
  - ARTHROPATHY [None]
  - FOOT DEFORMITY [None]
  - MOVEMENT DISORDER [None]
  - PAIN [None]
  - PAIN IN EXTREMITY [None]
  - SPIDER NAEVUS [None]
  - WEIGHT BEARING DIFFICULTY [None]
